FAERS Safety Report 6855704-8 (Version None)
Quarter: 2010Q3

REPORT INFORMATION
  Report Type: 
  Country: None (occurrence: None)
  Receive Date: 20100719
  Receipt Date: 20090715
  Transmission Date: 20110219
  Serious: No
  Sender: FDA-Public Use
  Company Number: US-KINGPHARMUSA00001-K200900874

PATIENT
  Sex: Female
  Weight: 53.515 kg

DRUGS (4)
  1. LEVOXYL [Suspect]
     Indication: THYROID DISORDER
     Dosage: 50 MCG, QD
     Route: 048
     Dates: start: 19990101, end: 20090715
  2. PRAVASTATIN [Concomitant]
     Indication: LIPIDS INCREASED
     Dosage: 40 MG, QD
  3. CALCIUM + VITAMIN D [Concomitant]
     Indication: OSTEOPOROSIS
     Dosage: 1200 MG, QD
  4. GLUCOSAMINE [Concomitant]
     Dosage: 1500 MG, QD

REACTIONS (5)
  - CONTRAST MEDIA REACTION [None]
  - FEELING JITTERY [None]
  - HEADACHE [None]
  - MALAISE [None]
  - MUSCULOSKELETAL DISCOMFORT [None]
